FAERS Safety Report 9945738 (Version 1)
Quarter: 2014Q1

REPORT INFORMATION
  Report Type: Report from Study
  Country: US (occurrence: US)
  Receive Date: 20140303
  Receipt Date: 20140303
  Transmission Date: 20141002
  Serious: No
  Sender: FDA-Public Use
  Company Number: US-ABBVIE-13P-163-1049523-00

PATIENT
  Sex: Male
  Weight: 108.96 kg

DRUGS (3)
  1. HUMIRA [Suspect]
     Indication: CROHN^S DISEASE
     Dates: start: 201202, end: 2013
  2. ASACOL [Concomitant]
     Indication: PRODUCT USED FOR UNKNOWN INDICATION
  3. VITAMIN B12 [Concomitant]
     Indication: PRODUCT USED FOR UNKNOWN INDICATION

REACTIONS (1)
  - Drug ineffective [Not Recovered/Not Resolved]
